FAERS Safety Report 7553589-8 (Version None)
Quarter: 2011Q2

REPORT INFORMATION
  Report Type: 
  Country: None (occurrence: None)
  Receive Date: 20110617
  Receipt Date: 20110608
  Transmission Date: 20111010
  Serious: Yes (Other)
  Sender: FDA-Public Use
  Company Number: US-JNJFOC-20110605908

PATIENT
  Sex: Male
  Weight: 62.14 kg

DRUGS (3)
  1. LEVAQUIN [Suspect]
     Indication: BRONCHITIS
     Dosage: CONTINUOUS FRO 4 HOURS
     Route: 042
     Dates: start: 20110101, end: 20110101
  2. ASPIRIN [Concomitant]
     Indication: PROPHYLAXIS
     Route: 048
  3. LEVAQUIN [Suspect]
     Route: 048
     Dates: start: 20110101

REACTIONS (5)
  - OEDEMA PERIPHERAL [None]
  - APHONIA [None]
  - DYSPHONIA [None]
  - WEIGHT INCREASED [None]
  - BLISTER [None]
